FAERS Safety Report 24320648 (Version 1)
Quarter: 2024Q3

REPORT INFORMATION
  Report Type: Spontaneous
  Country: GB (occurrence: GB)
  Receive Date: 20240915
  Receipt Date: 20240915
  Transmission Date: 20241016
  Serious: Yes (Life-Threatening, Other)
  Sender: AUROBINDO
  Company Number: GB-MHRA-TPP46873652C10904318YC1725640771617

PATIENT
  Age: 73 Year
  Sex: Female
  Weight: 97 kg

DRUGS (3)
  1. LISINOPRIL [Suspect]
     Active Substance: LISINOPRIL
     Indication: Product used for unknown indication
     Dosage: 10 MILLIGRAM, ONCE A DAY
     Route: 065
     Dates: start: 20230714
  2. CLARITHROMYCIN [Concomitant]
     Active Substance: CLARITHROMYCIN
     Indication: Ill-defined disorder
     Dosage: 1 DOSAGE FORM, ONCE A DAY
     Route: 065
     Dates: start: 20230714
  3. FELODIPINE [Concomitant]
     Active Substance: FELODIPINE
     Indication: Ill-defined disorder
     Dosage: 1 DOSAGE FORM, ONCE A DAY ((INSTEAD OF LERCANIDIP...)
     Route: 065
     Dates: start: 20230714

REACTIONS (1)
  - Angioedema [Recovered/Resolved]
